FAERS Safety Report 25483926 (Version 1)
Quarter: 2025Q2

REPORT INFORMATION
  Report Type: Spontaneous
  Country: AE (occurrence: AE)
  Receive Date: 20250626
  Receipt Date: 20250626
  Transmission Date: 20250717
  Serious: Yes (Death, Hospitalization, Other)
  Sender: PFIZER
  Company Number: AE-PFIZER INC-PV202500075003

PATIENT
  Age: 34 Year
  Sex: Male

DRUGS (2)
  1. BESPONSA [Suspect]
     Active Substance: INOTUZUMAB OZOGAMICIN
     Indication: Acute lymphocytic leukaemia
     Route: 042
     Dates: start: 20250522, end: 20250522
  2. BESPONSA [Suspect]
     Active Substance: INOTUZUMAB OZOGAMICIN
     Route: 042
     Dates: start: 20250529, end: 20250529

REACTIONS (4)
  - Sepsis [Fatal]
  - Infection [Fatal]
  - Pyrexia [Fatal]
  - Pain [Fatal]

NARRATIVE: CASE EVENT DATE: 20250101
